FAERS Safety Report 9067557 (Version 3)
Quarter: 2013Q3

REPORT INFORMATION
  Report Type: Spontaneous
  Country: US (occurrence: US)
  Receive Date: 20130214
  Receipt Date: 20130711
  Transmission Date: 20140515
  Serious: Yes (Hospitalization, Other)
  Sender: FDA-Public Use
  Company Number: US-UCBSA-069797

PATIENT
  Age: 81 Year
  Sex: Female

DRUGS (3)
  1. CIMZIA [Suspect]
     Indication: CROHN^S DISEASE
     Dates: start: 20120628, end: 20130410
  2. CIMZIA [Suspect]
     Indication: CROHN^S DISEASE
     Dates: start: 20110923
  3. CIMZIA [Suspect]
     Indication: CROHN^S DISEASE
     Dates: start: 20100406

REACTIONS (6)
  - Surgery [Not Recovered/Not Resolved]
  - Urinary tract infection [Not Recovered/Not Resolved]
  - Cystitis [Recovered/Resolved]
  - Urethral stenosis [Recovered/Resolved]
  - Renal disorder [Unknown]
  - Perineal infection [Not Recovered/Not Resolved]
